FAERS Safety Report 21866995 (Version 8)
Quarter: 2024Q1

REPORT INFORMATION
  Report Type: Report from Study
  Country: US (occurrence: US)
  Receive Date: 20230116
  Receipt Date: 20240328
  Transmission Date: 20240410
  Serious: Yes (Hospitalization, Other)
  Sender: FDA-Public Use
  Company Number: US-TAKEDA-US201924234

PATIENT
  Age: 67 Year
  Sex: Female

DRUGS (2)
  1. HUMAN IMMUNOGLOBULIN G [Suspect]
     Active Substance: HUMAN IMMUNOGLOBULIN G
     Indication: Primary immunodeficiency syndrome
     Dosage: 40 GRAM
     Route: 042
  2. HUMAN IMMUNOGLOBULIN G [Suspect]
     Active Substance: HUMAN IMMUNOGLOBULIN G
     Indication: Immunodeficiency common variable

REACTIONS (20)
  - Respiratory tract infection [Recovered/Resolved]
  - Pneumonia bacterial [Unknown]
  - Road traffic accident [Unknown]
  - Back injury [Unknown]
  - Neck injury [Unknown]
  - Limb injury [Unknown]
  - Hydrocephalus [Unknown]
  - Bronchitis [Unknown]
  - Sinus disorder [Unknown]
  - Neck pain [Unknown]
  - Sinusitis [Unknown]
  - Feeling cold [Unknown]
  - Joint injury [Unknown]
  - Nerve compression [Unknown]
  - Insurance issue [Unknown]
  - Muscular weakness [Unknown]
  - Fatigue [Unknown]
  - Myalgia [Unknown]
  - Product use issue [Unknown]
  - Inappropriate schedule of product administration [Unknown]

NARRATIVE: CASE EVENT DATE: 20240223
